FAERS Safety Report 7127588-4 (Version None)
Quarter: 2010Q4

REPORT INFORMATION
  Report Type: 
  Country: None (occurrence: None)
  Receive Date: 20101129
  Receipt Date: 20101119
  Transmission Date: 20110411
  Serious: Yes (Hospitalization)
  Sender: FDA-Public Use
  Company Number: JP-BRISTOL-MYERS SQUIBB COMPANY-15398613

PATIENT
  Age: 70 Year
  Sex: Female

DRUGS (5)
  1. SAXAGLIPTIN [Suspect]
     Indication: TYPE 2 DIABETES MELLITUS
     Dosage: FORM: TABLET.
     Route: 048
     Dates: start: 20101014
  2. AMARYL [Concomitant]
     Dosage: FORM: TABLET
     Dates: start: 20101015
  3. MYSLEE [Concomitant]
     Dosage: FORM: TABLET.
  4. CRESTOR [Concomitant]
     Dosage: FORM: TABLET.
  5. JUVELA N [Concomitant]
     Dosage: FORM: CAPSULE.

REACTIONS (6)
  - ABDOMINAL PAIN UPPER [None]
  - ANGINA PECTORIS [None]
  - CORONARY ARTERY STENOSIS [None]
  - ELECTROCARDIOGRAM ST SEGMENT DEPRESSION [None]
  - PALPITATIONS [None]
  - VOMITING [None]
